FAERS Safety Report 10267268 (Version 1)
Quarter: 2014Q2

REPORT INFORMATION
  Report Type: Spontaneous
  Country: FR (occurrence: FR)
  Receive Date: 20140630
  Receipt Date: 20140630
  Transmission Date: 20141212
  Serious: Yes (Other)
  Sender: FDA-Public Use
  Company Number: FR-JNJFOC-20140612167

PATIENT
  Sex: 0

DRUGS (10)
  1. CONCERTA [Suspect]
     Indication: PARKINSON^S DISEASE
     Route: 048
  2. CONCERTA [Suspect]
     Indication: DEPRESSION
     Route: 048
  3. CONCERTA [Suspect]
     Indication: HYPERSOMNIA
     Route: 048
  4. CONCERTA [Suspect]
     Indication: NARCOLEPSY
     Route: 048
  5. CONCERTA [Suspect]
     Indication: ATTENTION DEFICIT/HYPERACTIVITY DISORDER
     Route: 048
  6. CONCERTA [Suspect]
     Indication: MENTAL DISABILITY
     Route: 048
  7. CONCERTA [Suspect]
     Indication: NARCOLEPSY
     Route: 048
  8. CONCERTA [Suspect]
     Indication: AUTISM
     Route: 048
  9. CONCERTA [Suspect]
     Indication: MENTAL DISORDER
     Route: 048
  10. CONCERTA [Suspect]
     Indication: ABNORMAL BEHAVIOUR
     Route: 048

REACTIONS (16)
  - Suicide attempt [Unknown]
  - Urogenital disorder [Unknown]
  - Cardiovascular disorder [Unknown]
  - Skin disorder [Unknown]
  - Intentional product misuse [Unknown]
  - Neoplasm [Unknown]
  - Neuromyopathy [Unknown]
  - Gastrointestinal disorder [Unknown]
  - Hepatobiliary disease [Unknown]
  - Haematology test abnormal [Unknown]
  - Poisoning [Unknown]
  - Psychiatric symptom [Unknown]
  - Procedural complication [Unknown]
  - Off label use [Unknown]
  - Tooth disorder [Unknown]
  - Ear, nose and throat examination abnormal [Unknown]
